FAERS Safety Report 6356396-7 (Version None)
Quarter: 2009Q3

REPORT INFORMATION
  Report Type: 
  Country: None (occurrence: None)
  Receive Date: 20090915
  Receipt Date: 20090907
  Transmission Date: 20100115
  Serious: Yes (Hospitalization)
  Sender: FDA-Public Use
  Company Number: BE-AVENTIS-200920177GDDC

PATIENT

DRUGS (6)
  1. DOCETAXEL [Suspect]
     Dosage: DOSE: UNK
     Route: 042
  2. CISPLATIN [Suspect]
     Dosage: DOSE: UNK
     Route: 042
  3. FLUOROURACIL [Suspect]
     Dosage: DOSE: UNK
     Route: 042
  4. BISOPROLOL [Concomitant]
  5. L-THYROXIN [Concomitant]
  6. ALPRAZOLAM [Concomitant]

REACTIONS (6)
  - ASPIRATION [None]
  - HYPOKALAEMIA [None]
  - ILEUS [None]
  - LUNG INFECTION [None]
  - NAUSEA [None]
  - VOMITING [None]
